FAERS Safety Report 17413955 (Version 2)
Quarter: 2020Q1

REPORT INFORMATION
  Report Type: Spontaneous
  Country: US (occurrence: US)
  Receive Date: 20200213
  Receipt Date: 20200325
  Transmission Date: 20200409
  Serious: Yes (Other)
  Sender: FDA-Public Use
  Company Number: US-GILEAD-2020-0450648

PATIENT
  Age: 45 Year
  Sex: Male
  Weight: 100.77 kg

DRUGS (18)
  1. VIREAD [Suspect]
     Active Substance: TENOFOVIR DISOPROXIL FUMARATE
     Indication: HIV INFECTION
     Dosage: 300 MG, QD
     Route: 048
     Dates: start: 20140507, end: 2014
  2. OPTICROM [Concomitant]
     Active Substance: CROMOLYN SODIUM
  3. EPIVIR [Concomitant]
     Active Substance: LAMIVUDINE
  4. DOLUTEGRAVIR [Concomitant]
     Active Substance: DOLUTEGRAVIR
  5. TIVICAY [Concomitant]
     Active Substance: DOLUTEGRAVIR SODIUM
  6. DESCOVY [Concomitant]
     Active Substance: EMTRICITABINE\TENOFOVIR ALAFENAMIDE FUMARATE
  7. PERIDEX [CHLORHEXIDINE GLUCONATE] [Concomitant]
  8. NORVIR [Concomitant]
     Active Substance: RITONAVIR
  9. VITAMIN C [Concomitant]
     Active Substance: ASCORBIC ACID
  10. VIREAD [Suspect]
     Active Substance: TENOFOVIR DISOPROXIL FUMARATE
     Indication: HEPATITIS B
     Dosage: 300 MG, QOD
     Route: 048
     Dates: start: 2014, end: 20170605
  11. TRUVADA [Suspect]
     Active Substance: EMTRICITABINE\TENOFOVIR DISOPROXIL FUMARATE
     Indication: HIV INFECTION
     Dosage: 1 DOSAGE FORM, QD
     Route: 048
     Dates: start: 201104, end: 201409
  12. ACULAR [Concomitant]
     Active Substance: KETOROLAC TROMETHAMINE
  13. LEXIVA [Concomitant]
     Active Substance: FOSAMPRENAVIR CALCIUM
  14. PRILOSEC [Concomitant]
     Active Substance: OMEPRAZOLE MAGNESIUM
  15. ZIAGEN [Concomitant]
     Active Substance: ABACAVIR SULFATE
  16. BARACLUDE [Concomitant]
     Active Substance: ENTECAVIR
  17. TRUVADA [Suspect]
     Active Substance: EMTRICITABINE\TENOFOVIR DISOPROXIL FUMARATE
     Indication: HEPATITIS B
     Dosage: 1 DOSAGE FORM, Q3DAYS
     Route: 048
     Dates: start: 2014, end: 20150407
  18. ZESTORETIC [Concomitant]
     Active Substance: HYDROCHLOROTHIAZIDE\LISINOPRIL

REACTIONS (7)
  - Emotional distress [Unknown]
  - Chronic kidney disease [Unknown]
  - Bone loss [Not Recovered/Not Resolved]
  - Pain [Unknown]
  - Anxiety [Unknown]
  - Anhedonia [Unknown]
  - Economic problem [Unknown]

NARRATIVE: CASE EVENT DATE: 201410
